FAERS Safety Report 23838590 (Version 5)
Quarter: 2025Q1

REPORT INFORMATION
  Report Type: Spontaneous
  Country: CA (occurrence: CA)
  Receive Date: 20240509
  Receipt Date: 20250113
  Transmission Date: 20250408
  Serious: Yes (Other)
  Sender: MYLAN
  Company Number: CA-MYLANLABS-2024M1041164

PATIENT
  Age: 74 Year
  Sex: Female

DRUGS (12)
  1. GABAPENTIN [Suspect]
     Active Substance: GABAPENTIN
     Indication: Neurotoxicity
     Route: 065
  2. GABAPENTIN [Suspect]
     Active Substance: GABAPENTIN
     Indication: Nystagmus
  3. BACLOFEN [Suspect]
     Active Substance: BACLOFEN
     Indication: Nystagmus
     Route: 065
  4. BACLOFEN [Suspect]
     Active Substance: BACLOFEN
     Indication: Neurotoxicity
  5. CLONAZEPAM [Suspect]
     Active Substance: CLONAZEPAM
     Indication: Neurotoxicity
     Route: 065
  6. CLONAZEPAM [Suspect]
     Active Substance: CLONAZEPAM
     Indication: Nystagmus
  7. DALFAMPRIDINE [Suspect]
     Active Substance: DALFAMPRIDINE
     Indication: Neurotoxicity
     Route: 065
  8. DALFAMPRIDINE [Suspect]
     Active Substance: DALFAMPRIDINE
     Indication: Nystagmus
  9. MEMANTINE [Suspect]
     Active Substance: MEMANTINE
     Indication: Neurotoxicity
     Route: 065
  10. MEMANTINE [Suspect]
     Active Substance: MEMANTINE
     Indication: Nystagmus
  11. DALFAMPRIDINE [Suspect]
     Active Substance: DALFAMPRIDINE
     Indication: Nystagmus
     Route: 065
  12. METRONIDAZOLE [Suspect]
     Active Substance: METRONIDAZOLE
     Indication: Product used for unknown indication
     Route: 065

REACTIONS (4)
  - Neurotoxicity [Unknown]
  - Drug ineffective [Unknown]
  - Drug ineffective for unapproved indication [Unknown]
  - Product use in unapproved indication [Unknown]
